FAERS Safety Report 12687214 (Version 4)
Quarter: 2017Q3

REPORT INFORMATION
  Report Type: Spontaneous
  Country: US (occurrence: US)
  Receive Date: 20160825
  Receipt Date: 20170818
  Transmission Date: 20171127
  Serious: Yes (Other)
  Sender: FDA-Public Use
  Company Number: US-GLAXOSMITHKLINE-US2016GSK116451

PATIENT
  Age: 55 Year
  Sex: Female

DRUGS (15)
  1. BENLYSTA [Suspect]
     Active Substance: BELIMUMAB
     Indication: SYSTEMIC LUPUS ERYTHEMATOSUS
     Dosage: 595 MG, CYC
     Dates: start: 2015
  2. TRAMADOL. [Concomitant]
     Active Substance: TRAMADOL
  3. CALCIUM [Concomitant]
     Active Substance: CALCIUM
  4. SYNTHROID [Concomitant]
     Active Substance: LEVOTHYROXINE SODIUM
  5. PLAQUENIL [Concomitant]
     Active Substance: HYDROXYCHLOROQUINE SULFATE
  6. AMPHETAMINE [Concomitant]
     Active Substance: AMPHETAMINE
  7. MEDROXYPROGESTERONE [Concomitant]
     Active Substance: MEDROXYPROGESTERONE
  8. ALPRAZOLAM. [Concomitant]
     Active Substance: ALPRAZOLAM
  9. ESTRADIOL. [Concomitant]
     Active Substance: ESTRADIOL
  10. FUROSEMIDE + POTASSIUM CHLORIDE [Concomitant]
  11. BENLYSTA [Suspect]
     Active Substance: BELIMUMAB
     Dosage: UNK
  12. TRAZODONE [Concomitant]
     Active Substance: TRAZODONE HYDROCHLORIDE
  13. CARISOPRODOL. [Concomitant]
     Active Substance: CARISOPRODOL
  14. OMEGA 3 [Concomitant]
     Active Substance: OMEGA-3 FATTY ACIDS
  15. BIOTIN [Concomitant]
     Active Substance: BIOTIN

REACTIONS (10)
  - Abdominal distension [Unknown]
  - Autoimmune disorder [Unknown]
  - Arthralgia [Unknown]
  - Dry eye [Not Recovered/Not Resolved]
  - Diarrhoea [Unknown]
  - Nausea [Unknown]
  - Viral infection [Unknown]
  - Flatulence [Unknown]
  - Asthenia [Not Recovered/Not Resolved]
  - Muscle spasms [Not Recovered/Not Resolved]

NARRATIVE: CASE EVENT DATE: 2015
